FAERS Safety Report 4878795-2 (Version None)
Quarter: 2005Q4

REPORT INFORMATION
  Report Type: 
  Country: None (occurrence: None)
  Receive Date: 20051209
  Receipt Date: 20050525
  Transmission Date: 20060501
  Serious: Yes (Other)
  Sender: FDA-Public Use
  Company Number: USA-2005-0020377

PATIENT
  Age: 41 Year
  Sex: Male

DRUGS (1)
  1. OXYCONTIN [Suspect]
     Indication: PAIN
     Dosage: 10 MG, Q12H

REACTIONS (3)
  - ANAPHYLACTIC REACTION [None]
  - DYSPNOEA [None]
  - URTICARIA [None]
